FAERS Safety Report 20126949 (Version 1)
Quarter: 2021Q4

REPORT INFORMATION
  Report Type: Spontaneous
  Country: US (occurrence: US)
  Receive Date: 20211129
  Receipt Date: 20211129
  Transmission Date: 20220303
  Serious: No
  Sender: FDA-Public Use
  Company Number: US-BAYER-2021A253747

PATIENT

DRUGS (2)
  1. ADEMPAS [Suspect]
     Active Substance: RIOCIGUAT
  2. TRIUMEQ [Concomitant]
     Active Substance: ABACAVIR SULFATE\DOLUTEGRAVIR SODIUM\LAMIVUDINE
     Indication: HIV infection

REACTIONS (3)
  - Drug intolerance [None]
  - Nausea [None]
  - Vomiting [None]
